FAERS Safety Report 25857279 (Version 1)
Quarter: 2025Q3

REPORT INFORMATION
  Report Type: Spontaneous
  Country: US (occurrence: US)
  Receive Date: 20250929
  Receipt Date: 20250929
  Transmission Date: 20251021
  Serious: Yes (Hospitalization, Other)
  Sender: ZYDUS PHARM
  Company Number: US-CADILA HEALTHCARE LIMITED-US-ZYDUS-128524

PATIENT

DRUGS (4)
  1. BACLOFEN [Suspect]
     Active Substance: BACLOFEN
     Indication: Multiple sclerosis
     Route: 037
  2. BACLOFEN [Suspect]
     Active Substance: BACLOFEN
     Indication: Muscle spasticity
     Route: 037
  3. CLONIDINE [Concomitant]
     Active Substance: CLONIDINE
     Indication: Multiple sclerosis
     Route: 065
  4. CLONIDINE [Concomitant]
     Active Substance: CLONIDINE
     Indication: Muscle spasticity

REACTIONS (10)
  - Pulseless electrical activity [Recovering/Resolving]
  - Motor dysfunction [Recovering/Resolving]
  - Hypothermia [Recovering/Resolving]
  - Bradycardia [Recovering/Resolving]
  - Areflexia [Recovering/Resolving]
  - Generalised tonic-clonic seizure [Recovering/Resolving]
  - Overdose [Unknown]
  - Coma [Recovering/Resolving]
  - Toxicity to various agents [Unknown]
  - Hypotension [Recovering/Resolving]
